FAERS Safety Report 4595209-0 (Version None)
Quarter: 2005Q1

REPORT INFORMATION
  Report Type: 
  Country: None (occurrence: None)
  Receive Date: 20050225
  Receipt Date: 20041217
  Transmission Date: 20050727
  Serious: Yes (Life-Threatening, Hospitalization)
  Sender: FDA-Public Use
  Company Number: 2005022759

PATIENT
  Age: 53 Year
  Sex: Female
  Weight: 54.4316 kg

DRUGS (5)
  1. CELEBREX [Suspect]
     Indication: STRESS FRACTURE
     Dosage: ORAL
     Route: 048
     Dates: start: 20020101
  2. CELEBREX [Suspect]
     Indication: SURGERY
     Dosage: ORAL
     Route: 048
     Dates: start: 20020101
  3. ROFECOXIB [Suspect]
     Indication: ILL-DEFINED DISORDER
  4. ATENOLOL [Concomitant]
  5. ISOSORBIDE DINITRATE [Concomitant]

REACTIONS (6)
  - ANGINA PECTORIS [None]
  - CIRCULATORY COLLAPSE [None]
  - DIABETES MELLITUS [None]
  - HEART RATE INCREASED [None]
  - MYOCARDIAL INFARCTION [None]
  - NAUSEA [None]
